FAERS Safety Report 21764010 (Version 7)
Quarter: 2023Q2

REPORT INFORMATION
  Report Type: Report from Study
  Country: TR (occurrence: None)
  Receive Date: 20221222
  Receipt Date: 20230410
  Transmission Date: 20230721
  Serious: Yes (Hospitalization)
  Sender: FDA-Public Use
  Company Number: TR-ROCHE-3245792

PATIENT
  Age: 58 Year
  Sex: Female
  Weight: 76 kg

DRUGS (20)
  1. ATEZOLIZUMAB [Suspect]
     Active Substance: ATEZOLIZUMAB
     Indication: Small cell lung cancer extensive stage
     Dosage: ON 15/DEC/2022, RECEIVED MOST RECENT DOSE 1200 MG OF ATEZOLIZUMAB (IV) PRIOR TO ADVERSE EVENT (AE) A
     Route: 041
     Dates: start: 20220818
  2. CARBOPLATIN [Suspect]
     Active Substance: CARBOPLATIN
     Indication: Small cell lung cancer extensive stage
     Dosage: ON DAY 1 OF EACH 21-DAY CYCLE FOR 4 CYCLES?ON 18/OCT/2022, RECEIVED MOST RECENT DOSE OF LAST STUDY C
     Route: 042
     Dates: start: 20220818
  3. ETOPOSIDE [Suspect]
     Active Substance: ETOPOSIDE
     Indication: Small cell lung cancer extensive stage
     Dosage: ON DAYS 1, 2, AND 3 OF EACH 21-DAY CYCLE FOR 4 CYCLES?ON 18/OCT/2022, RECEIVED MOST RECENT DOSE OF L
     Route: 042
     Dates: start: 20220818
  4. LURBINECTEDIN [Suspect]
     Active Substance: LURBINECTEDIN
     Indication: Small cell lung cancer extensive stage
     Dosage: ON DAY 1 OF EACH 21-DAY CYCLE IN THE MAINTENANCE PHASE.?ON 15/DEC/2022, RECEIVED MOST RECENT DOSE OF
     Route: 041
     Dates: start: 20221115
  5. ATACAND [Concomitant]
     Active Substance: CANDESARTAN CILEXETIL
     Indication: Hypertension
     Route: 058
     Dates: start: 1991
  6. ASPIRIN [Concomitant]
     Active Substance: ASPIRIN
     Indication: Anticoagulant therapy
     Dates: start: 201901
  7. PANTO (TURKEY) [Concomitant]
     Indication: Pneumonia
     Dates: start: 20220712
  8. PHENIRAMINE [Concomitant]
     Active Substance: PHENIRAMINE
     Indication: Hypersensitivity
     Dates: start: 20220818
  9. EMETRIL [Concomitant]
     Indication: Nausea
     Dates: start: 20220818
  10. EMETRIL [Concomitant]
     Indication: Vomiting
  11. DEKORT [Concomitant]
     Active Substance: DEXAMETHASONE
     Indication: Hypersensitivity
     Route: 042
     Dates: start: 20220818
  12. GRANITRON [Concomitant]
     Indication: Nausea
     Dates: start: 20220818
  13. GRANITRON [Concomitant]
     Indication: Vomiting
  14. FRAVEN [Concomitant]
     Indication: Leukopenia
     Route: 058
     Dates: start: 20220822
  15. LEFOX [Concomitant]
     Indication: Infection
     Dates: start: 20221207, end: 20221214
  16. LEFOX [Concomitant]
     Indication: C-reactive protein increased
  17. HUMAN RED BLOOD CELL [Concomitant]
     Active Substance: HUMAN RED BLOOD CELL
     Indication: Anaemia
     Dates: start: 20221213, end: 20221213
  18. METHYLPREDNISOLONE [Concomitant]
     Active Substance: METHYLPREDNISOLONE
     Indication: Platelet count decreased
     Route: 048
     Dates: start: 20221217
  19. METHYLPREDNISOLONE [Concomitant]
     Active Substance: METHYLPREDNISOLONE
     Indication: Aspartate aminotransferase increased
  20. METHYLPREDNISOLONE [Concomitant]
     Active Substance: METHYLPREDNISOLONE
     Indication: Alanine aminotransferase increased

REACTIONS (2)
  - Aspartate aminotransferase increased [Recovered/Resolved]
  - Alanine aminotransferase increased [Recovered/Resolved]

NARRATIVE: CASE EVENT DATE: 20221217
